FAERS Safety Report 11540793 (Version 1)
Quarter: 2015Q3

REPORT INFORMATION
  Report Type: Spontaneous
  Country: US (occurrence: US)
  Receive Date: 20150923
  Receipt Date: 20150923
  Transmission Date: 20151125
  Serious: No
  Sender: FDA-Public Use
  Company Number: US-APOTEX-2015AP005454

PATIENT
  Sex: Female

DRUGS (7)
  1. PAXIL [Suspect]
     Active Substance: PAROXETINE HYDROCHLORIDE
     Dosage: 40 MG, DAILY
     Dates: start: 19991109, end: 20001201
  2. PAROXETINE HYDROCHLORIDE CONTROLLED-RELEASE [Suspect]
     Active Substance: PAROXETINE HYDROCHLORIDE
     Indication: DEPRESSION
     Dosage: UNK
     Route: 065
     Dates: start: 19991024
  3. TRAZODONE [Concomitant]
     Active Substance: TRAZODONE HYDROCHLORIDE
     Indication: PRODUCT USED FOR UNKNOWN INDICATION
     Route: 065
  4. PAXIL [Suspect]
     Active Substance: PAROXETINE HYDROCHLORIDE
     Dosage: 20 MG, UNK
     Dates: start: 19990821, end: 19991109
  5. RISPERDAL [Concomitant]
     Active Substance: RISPERIDONE
     Indication: PRODUCT USED FOR UNKNOWN INDICATION
     Route: 065
  6. PAXIL [Suspect]
     Active Substance: PAROXETINE HYDROCHLORIDE
     Indication: PRODUCT USED FOR UNKNOWN INDICATION
     Dosage: 20 MG, DAILY
     Route: 065
     Dates: start: 19990402, end: 19990615
  7. PAXIL [Suspect]
     Active Substance: PAROXETINE HYDROCHLORIDE
     Dosage: 30 MG, DAILY
     Dates: start: 19990616, end: 19990821

REACTIONS (2)
  - Vaginal haemorrhage [Unknown]
  - Maternal exposure during pregnancy [Unknown]

NARRATIVE: CASE EVENT DATE: 20000229
